FAERS Safety Report 25064366 (Version 2)
Quarter: 2025Q1

REPORT INFORMATION
  Report Type: Report from Study
  Country: US (occurrence: US)
  Receive Date: 20250311
  Receipt Date: 20250320
  Transmission Date: 20250409
  Serious: No
  Sender: BAUSCH AND LOMB
  Company Number: US-BAUSCH-BL-2025-002956

PATIENT
  Sex: Male

DRUGS (18)
  1. XIFAXAN [Suspect]
     Active Substance: RIFAXIMIN
     Indication: Hepatic encephalopathy
     Dosage: TAKE ONE TABLET BY MOUTH TWICE DAILY
     Route: 048
     Dates: start: 202411
  2. LIPITOR [Concomitant]
     Active Substance: ATORVASTATIN CALCIUM
     Indication: Product used for unknown indication
     Dosage: TAKE ONE TABLET BY MOUTH DAILY
     Route: 048
     Dates: start: 20240904
  3. TESSALON [Concomitant]
     Active Substance: BENZONATATE
     Indication: Product used for unknown indication
     Route: 048
     Dates: start: 20240810, end: 20241025
  4. CALCIUM\VITAMIN D [Concomitant]
     Active Substance: CALCIUM\VITAMIN D
     Indication: Product used for unknown indication
     Dosage: TAKE 1 TABLET BY MOUTH DAILY
     Route: 048
  5. CIPROX [Concomitant]
     Indication: Product used for unknown indication
     Dosage: TAKE 1 TABLET TWICE DAILY ON MONDAYS, WEDNESDAYS, AND FRIDAYS ONLY
     Route: 048
  6. INSPRA [Concomitant]
     Active Substance: EPLERENONE
     Indication: Fluid imbalance
     Dosage: TAKE ONE TABLET BY MOUTH DAILY
     Route: 048
  7. FERROUS SULFATE [Concomitant]
     Active Substance: FERROUS SULFATE
     Indication: Product used for unknown indication
     Route: 048
     Dates: end: 20241025
  8. PROZAC [Concomitant]
     Active Substance: FLUOXETINE HYDROCHLORIDE
     Indication: Product used for unknown indication
     Dosage: TAKE ONE CAPSULE BY MOUTH DAILY
     Route: 048
  9. LASIX [Concomitant]
     Active Substance: FUROSEMIDE
     Indication: Fluid imbalance
     Route: 048
     Dates: start: 20240624
  10. LACTULOSE [Concomitant]
     Active Substance: LACTULOSE
     Indication: Frequent bowel movements
     Dosage: TAKE 30 ML BY MOUTH THREE TIMES DAILY AS NEEDED, TREAT 3-4 TIMES PER DAY, 10 GRAM/15 ML
     Route: 048
     Dates: start: 20240316, end: 20250207
  11. LEVOCARNITINE TARTRATE [Concomitant]
     Active Substance: LEVOCARNITINE TARTRATE
     Indication: Product used for unknown indication
     Dosage: TAKE THREE TABLETS BY MOUTH TWICE DAILY
     Route: 048
  12. ZOFRAN [Concomitant]
     Active Substance: ONDANSETRON HYDROCHLORIDE
     Indication: Nausea
     Route: 048
  13. ZOFRAN [Concomitant]
     Active Substance: ONDANSETRON HYDROCHLORIDE
     Indication: Vomiting
  14. PROTONIX [Concomitant]
     Active Substance: PANTOPRAZOLE SODIUM
     Indication: Product used for unknown indication
     Dosage: TAKE ONE TABLET BY MOUTH DAILY
     Route: 048
     Dates: start: 20240624
  15. STELARA [Concomitant]
     Active Substance: USTEKINUMAB
     Indication: Crohn^s disease
     Route: 058
     Dates: start: 20200715, end: 20241107
  16. VITAMIN A [Concomitant]
     Active Substance: VITAMIN A
     Indication: Product used for unknown indication
     Dosage: TAKE ONE CAPSULE BY MOUTH DAILY
     Route: 048
     Dates: start: 20240916
  17. ORAZINC [Concomitant]
     Indication: Product used for unknown indication
     Dosage: TAKE ONE CAPSULE BY MOUTH DAILY
     Route: 048
     Dates: start: 20240915, end: 20241021
  18. DRISDOL [Concomitant]
     Active Substance: ERGOCALCIFEROL
     Indication: Product used for unknown indication
     Dosage: TAKE ONE CAPSULE BY MOUTH EVERY 7 DAYS FOR 12 DOSES
     Route: 048
     Dates: start: 20240916, end: 20241203

REACTIONS (1)
  - Insurance issue [Unknown]
